FAERS Safety Report 6451753-2 (Version None)
Quarter: 2009Q4

REPORT INFORMATION
  Report Type: 
  Country: None (occurrence: None)
  Receive Date: 20091120
  Receipt Date: 20091120
  Transmission Date: 20100525
  Serious: No
  Sender: FDA-Public Use
  Company Number: None

PATIENT
  Age: 28 Year
  Sex: Male
  Weight: 69.4 kg

DRUGS (1)
  1. DIPHENHYDRAMINE HCL [Suspect]
     Indication: ANTIALLERGIC THERAPY
     Dosage: 25 MG UD PO
     Route: 048
     Dates: start: 20090324, end: 20090326

REACTIONS (2)
  - FEELING OF BODY TEMPERATURE CHANGE [None]
  - FORMICATION [None]
